FAERS Safety Report 8127436 (Version 2)
Quarter: 2013Q2

REPORT INFORMATION
  Report Type: Report from Study
  Country: US (occurrence: US)
  Receive Date: 20110908
  Receipt Date: 20130419
  Transmission Date: 20140414
  Serious: Yes (Hospitalization, Other)
  Sender: FDA-Public Use
  Company Number: US-RB-031907-11

PATIENT
  Age: 57 Year
  Sex: Female

DRUGS (3)
  1. SUBOXONE FILM [Suspect]
     Indication: PAIN MANAGEMENT
     Dosage: SUBOXONE FILM; DOSING DETAILS UNKNOWN
     Route: 065
     Dates: start: 201108, end: 201108
  2. KLONOPIN [Concomitant]
     Indication: PRODUCT USED FOR UNKNOWN INDICATION
     Route: 048
  3. PROZAC [Concomitant]
     Indication: DEPRESSION
     Route: 048

REACTIONS (6)
  - Off label use [Recovered/Resolved]
  - Convulsion [Recovered/Resolved]
  - Blood glucose decreased [Recovered/Resolved]
  - Feeling jittery [Recovered/Resolved]
  - Muscle rigidity [Recovered/Resolved]
  - Feeling abnormal [Recovered/Resolved]
